FAERS Safety Report 5259438-5 (Version None)
Quarter: 2007Q1

REPORT INFORMATION
  Report Type: 
  Country: None (occurrence: None)
  Receive Date: 20070305
  Receipt Date: 20070103
  Transmission Date: 20070707
  Serious: Yes (Other)
  Sender: FDA-Public Use
  Company Number: 310006M06USA

PATIENT
  Age: 36 Year
  Sex: Female
  Weight: 68.0396 kg

DRUGS (2)
  1. GONAL-F [Suspect]
     Indication: INFERTILITY FEMALE
     Dosage: 150 IU, 1 IN 1 DAYS, SUBCUTANEOUS
     Route: 058
     Dates: start: 20061027, end: 20061103
  2. OVIDREL [Suspect]
     Indication: INFERTILITY FEMALE
     Dosage: 250 MCG, ONCE, SUBCUTANEOUS
     Route: 058
     Dates: start: 20061104, end: 20061104

REACTIONS (1)
  - SARCOIDOSIS [None]
